FAERS Safety Report 4919575-9 (Version None)
Quarter: 2006Q1

REPORT INFORMATION
  Report Type: 
  Country: None (occurrence: None)
  Receive Date: 20060222
  Receipt Date: 20051001
  Transmission Date: 20060701
  Serious: Yes (Hospitalization)
  Sender: FDA-Public Use
  Company Number: US-MERCK-0510USA01049

PATIENT
  Age: 71 Year
  Sex: Male
  Weight: 73 kg

DRUGS (4)
  1. VIOXX [Suspect]
     Indication: ARTHRALGIA
     Route: 048
     Dates: start: 19990901, end: 20020216
  2. VIOXX [Suspect]
     Route: 048
     Dates: end: 20040101
  3. VIOXX [Suspect]
     Route: 048
     Dates: start: 19990901, end: 20020216
  4. VIOXX [Suspect]
     Route: 048
     Dates: end: 20040101

REACTIONS (22)
  - ANGINA PECTORIS [None]
  - ANGIOPATHY [None]
  - ARRHYTHMIA [None]
  - BRONCHOPNEUMONIA [None]
  - CARDIOVASCULAR DISORDER [None]
  - CEREBROVASCULAR ACCIDENT [None]
  - CHOLELITHIASIS [None]
  - CORONARY ARTERY DISEASE [None]
  - DECUBITUS ULCER [None]
  - DEEP VEIN THROMBOSIS [None]
  - DEPRESSION [None]
  - DIABETES MELLITUS [None]
  - DRUG HYPERSENSITIVITY [None]
  - FAECALOMA [None]
  - HYPERTENSION [None]
  - MYALGIA [None]
  - MYOCARDIAL INFARCTION [None]
  - ORGAN FAILURE [None]
  - OSTEOARTHRITIS [None]
  - PULMONARY EMBOLISM [None]
  - SEPSIS [None]
  - THROMBOSIS [None]
